FAERS Safety Report 24186876 (Version 1)
Quarter: 2024Q3

REPORT INFORMATION
  Report Type: Spontaneous
  Country: US (occurrence: US)
  Receive Date: 20240808
  Receipt Date: 20240808
  Transmission Date: 20241017
  Serious: No
  Sender: CSL BEHRING
  Company Number: US-BEH-2024176835

PATIENT
  Age: 62 Year
  Sex: Female

DRUGS (1)
  1. HIZENTRA [Suspect]
     Active Substance: HUMAN IMMUNOGLOBULIN G
     Dosage: 10 G  EVERY 2 WEEKS
     Route: 065

REACTIONS (3)
  - Chest discomfort [Recovered/Resolved]
  - Obstructive airways disorder [Recovered/Resolved]
  - Dyspnoea [Recovered/Resolved]

NARRATIVE: CASE EVENT DATE: 20240726
